FAERS Safety Report 24646660 (Version 2)
Quarter: 2024Q4

REPORT INFORMATION
  Report Type: Spontaneous
  Country: ES (occurrence: ES)
  Receive Date: 20241121
  Receipt Date: 20241226
  Transmission Date: 20250115
  Serious: Yes (Other)
  Sender: BAYER HEALTHCARE PHARMACEUTICALS INC.
  Company Number: ES-BAYER-2024A162015

PATIENT
  Age: 58 Year
  Sex: Male

DRUGS (7)
  1. FINERENONE [Suspect]
     Active Substance: FINERENONE
     Indication: Type 2 diabetes mellitus
     Dosage: 10 MG
     Dates: start: 20240513
  2. FINERENONE [Suspect]
     Active Substance: FINERENONE
     Indication: Nephropathy
  3. FINERENONE [Suspect]
     Active Substance: FINERENONE
     Indication: Myocardial ischaemia
  4. FINERENONE [Suspect]
     Active Substance: FINERENONE
     Indication: Type 2 diabetes mellitus
     Dosage: 20 MG
     Dates: start: 20240916, end: 20241016
  5. FINERENONE [Suspect]
     Active Substance: FINERENONE
     Indication: Myocardial ischaemia
  6. FINERENONE [Suspect]
     Active Substance: FINERENONE
     Indication: Nephropathy
  7. ATORVASTATIN [Suspect]
     Active Substance: ATORVASTATIN
     Dosage: UNK
     Dates: start: 20200113, end: 20241016

REACTIONS (4)
  - Hepatitis [Recovered/Resolved]
  - Transaminases increased [Recovered/Resolved]
  - Gamma-glutamyltransferase increased [Recovered/Resolved]
  - Blood alkaline phosphatase increased [Recovered/Resolved]

NARRATIVE: CASE EVENT DATE: 20240830
